FAERS Safety Report 23014821 (Version 1)
Quarter: 2023Q4

REPORT INFORMATION
  Report Type: Report from Study
  Country: None (occurrence: TR)
  Receive Date: 20231002
  Receipt Date: 20231002
  Transmission Date: 20240110
  Serious: Yes (Hospitalization, Other)
  Sender: FDA-Public Use
  Company Number: TR-Marksans Pharma Limited-2146541

PATIENT
  Age: 12 Year
  Sex: Male

DRUGS (3)
  1. GABAPENTIN [Suspect]
     Active Substance: GABAPENTIN
     Indication: Neuralgia
     Route: 065
  2. 2,3-DIMERCAPTOSUCCINIC ACID [Concomitant]
     Active Substance: 2,3-DIMERCAPTOSUCCINIC ACID
     Route: 065
  3. PYRIDOXINE [Concomitant]
     Active Substance: PYRIDOXINE
     Route: 065

REACTIONS (4)
  - Papilloedema [Recovering/Resolving]
  - Intracranial pressure increased [Recovering/Resolving]
  - Conjunctivochalasis [Recovering/Resolving]
  - Off label use [Unknown]
